FAERS Safety Report 8143265-5 (Version None)
Quarter: 2012Q1

REPORT INFORMATION
  Report Type: 
  Country: None (occurrence: None)
  Receive Date: 20120217
  Receipt Date: 20120214
  Transmission Date: 20120608
  Serious: Yes (Death)
  Sender: FDA-Public Use
  Company Number: PE-PFIZER INC-2012041016

PATIENT
  Age: 68 Year
  Sex: Female

DRUGS (2)
  1. LIPITOR [Suspect]
     Dosage: UNK
     Route: 048
  2. LATANOPROST [Suspect]
     Indication: GLAUCOMA
     Dosage: 0.03 MG ONCE DAILY
     Route: 047

REACTIONS (1)
  - DEATH [None]
